FAERS Safety Report 9702031 (Version 1)
Quarter: 2013Q4

REPORT INFORMATION
  Report Type: Spontaneous
  Country: US (occurrence: None)
  Receive Date: 20131120
  Receipt Date: 20131120
  Transmission Date: 20140711
  Serious: Yes (Disabling)
  Sender: FDA-Public Use
  Company Number: None

PATIENT
  Age: 69 Year
  Sex: Female
  Weight: 58.97 kg

DRUGS (6)
  1. LETROZOLE [Suspect]
     Indication: ANTIOESTROGEN THERAPY
     Route: 048
  2. MULTI-VITAMIN [Concomitant]
  3. CO-Q 10 [Concomitant]
  4. CRANBERRY TABLET [Concomitant]
  5. FISH OIL [Concomitant]
  6. CALCIUM [Concomitant]

REACTIONS (1)
  - Urinary tract infection [None]
